FAERS Safety Report 7379191-9 (Version None)
Quarter: 2011Q1

REPORT INFORMATION
  Report Type: 
  Country: None (occurrence: None)
  Receive Date: 20110328
  Receipt Date: 20110318
  Transmission Date: 20110831
  Serious: Yes (Other)
  Sender: FDA-Public Use
  Company Number: GB-ABBOTT-11P-167-0713259-00

PATIENT
  Age: 30 Year
  Sex: Female
  Weight: 80 kg

DRUGS (19)
  1. CORTICOSTEROID [Concomitant]
     Indication: UVEITIS
     Dosage: RIGHT EYE
     Dates: start: 20110112, end: 20110120
  2. CELLCEPT [Concomitant]
     Dates: start: 20110113
  3. ETHINYL ESTRADIOL AND LEVONORGESTREL [Concomitant]
     Indication: CONTRACEPTION
     Dates: start: 19940101
  4. PREDNISONE [Suspect]
     Route: 048
     Dates: start: 20110127, end: 20110202
  5. PREDNISONE [Suspect]
     Route: 048
     Dates: start: 20110203, end: 20110209
  6. PREDNISOLONE [Concomitant]
     Indication: UVEITIS
     Route: 048
     Dates: start: 20080401, end: 20110112
  7. CORTICOSTEROID [Concomitant]
     Dosage: RIGHT EYE
     Dates: start: 20110210, end: 20110221
  8. HUMIRA [Suspect]
     Indication: UVEITIS
     Dosage: 40 MG, ALTERNATE WEEKS
     Route: 058
     Dates: start: 20110112, end: 20110302
  9. PREDNISONE [Suspect]
     Indication: UVEITIS
     Route: 048
     Dates: start: 20110113, end: 20110126
  10. CORTICOSTEROID [Concomitant]
     Dosage: RIGHT EYE
     Dates: start: 20110121, end: 20110209
  11. OMEPRAZOLE [Concomitant]
     Indication: GASTRIC DISORDER
     Dates: start: 20101101
  12. ERYTHROMYCINE [Concomitant]
     Indication: ACNE
     Dates: start: 20101001
  13. PRED FORTE [Concomitant]
     Indication: INFLAMMATION
     Dates: start: 20101122
  14. MULTI-VITAMIN [Concomitant]
     Indication: VITAMIN SUPPLEMENTATION
     Dates: start: 20070101
  15. OMEPRAZOLE [Concomitant]
     Indication: PROPHYLAXIS
  16. CYCLOPENTOLATE [Concomitant]
     Indication: MYDRIASIS
     Dates: start: 20101122
  17. DOXYCYCLINE [Concomitant]
     Indication: ACNE
     Dates: start: 20101001
  18. PREDNISONE [Suspect]
     Route: 048
     Dates: start: 20110210, end: 20110216
  19. CELLCEPT [Concomitant]
     Indication: UVEITIS
     Dates: start: 20100501, end: 20110112

REACTIONS (4)
  - PARAESTHESIA [None]
  - RASH [None]
  - DEMYELINATION [None]
  - PERIPHERAL COLDNESS [None]
